FAERS Safety Report 6806005-5 (Version None)
Quarter: 2010Q2

REPORT INFORMATION
  Report Type: 
  Country: None (occurrence: None)
  Receive Date: 20100629
  Receipt Date: 20080102
  Transmission Date: 20101027
  Serious: No
  Sender: FDA-Public Use
  Company Number: US-PFIZER INC-2007092236

PATIENT
  Age: 61 Year
  Sex: Male
  Weight: 91.17 kg

DRUGS (5)
  1. VIAGRA [Suspect]
     Indication: ERECTILE DYSFUNCTION
  2. BENICAR [Interacting]
     Indication: HYPERTENSION
     Dates: start: 20070101
  3. ACETYLSALICYLIC ACID [Concomitant]
  4. CINNAMON [Concomitant]
  5. CALCIUM CARBONATE [Concomitant]

REACTIONS (3)
  - BLOOD PRESSURE INADEQUATELY CONTROLLED [None]
  - DRUG INEFFECTIVE [None]
  - DRUG INTERACTION [None]
